FAERS Safety Report 8764115 (Version 2)
Quarter: 2013Q1

REPORT INFORMATION
  Report Type: Spontaneous
  Country: US (occurrence: None)
  Receive Date: 20120828
  Receipt Date: 20121214
  Transmission Date: 20140127
  Serious: Yes (Hospitalization)
  Sender: FDA-Public Use
  Company Number: 1381646

PATIENT
  Age: 43 Year
  Sex: Female

DRUGS (11)
  1. CARBOPLATIN [Suspect]
     Indication: BREAST CANCER
     Dosage: AUC 4.5, 1 IN 3 WK, INTRAVENOUS
     Route: 042
     Dates: start: 20120326, end: 20120604
  2. ABRAXANE [Suspect]
     Indication: BREAST CANCER
     Dates: start: 20120312, end: 20120611
  3. TRASTUZUMAB [Suspect]
     Indication: BREAST CANCER
     Dates: start: 20120618
  4. DEPAKOTE [Concomitant]
  5. PROZAC [Concomitant]
  6. METFORMIN [Concomitant]
  7. HYDROCHLOROTHIAZIDE [Concomitant]
  8. COMPAZINE [Concomitant]
  9. DETROL [Concomitant]
  10. MOTRIN [Concomitant]
  11. CRESTOR [Concomitant]

REACTIONS (10)
  - Dehydration [None]
  - Dyspnoea exertional [None]
  - Diarrhoea [None]
  - Vomiting [None]
  - Anaemia [None]
  - Nausea [None]
  - Hypokalaemia [None]
  - Neutropenia [None]
  - Thrombocytopenia [None]
  - Blood pressure decreased [None]
